FAERS Safety Report 9787603 (Version 1)
Quarter: 2013Q4

REPORT INFORMATION
  Report Type: Other
  Country: DE (occurrence: DE)
  Receive Date: 20131230
  Receipt Date: 20131230
  Transmission Date: 20140711
  Serious: Yes (Hospitalization, Congenital Anomaly, Other)
  Sender: FDA-Public Use
  Company Number: DE-SUN PHARMACEUTICAL INDUSTRIES LTD-2013SUN05302

PATIENT
  Age: 0 Day
  Sex: Male

DRUGS (3)
  1. VENLAFAXINE HYDROCHLORIDE EXTENDED- RELEASE TABS 37.5MG [Suspect]
     Indication: FOETAL EXPOSURE DURING PREGNANCY
     Dosage: MATERNAL DOSE: 375 MG (225-150-0 MG/D)
     Route: 064
  2. SEROQUEL [Suspect]
     Indication: FOETAL EXPOSURE DURING PREGNANCY
     Dosage: MATERNAL DOSE: 300 MG/DAY
     Route: 064
  3. ELONTRIL [Suspect]
     Indication: FOETAL EXPOSURE DURING PREGNANCY
     Dosage: MATERNAL DOSE: 300 MG/DAY
     Route: 064

REACTIONS (7)
  - Small for dates baby [Recovering/Resolving]
  - Umbilical cord abnormality [Recovered/Resolved]
  - Neonatal respiratory distress syndrome [Recovered/Resolved]
  - Oxygen saturation decreased [Recovered/Resolved]
  - Atrial septal defect [Unknown]
  - Feeding disorder neonatal [Recovered/Resolved]
  - Foetal exposure during pregnancy [Recovered/Resolved]
